FAERS Safety Report 6657412-5 (Version None)
Quarter: 2010Q1

REPORT INFORMATION
  Report Type: 
  Country: None (occurrence: None)
  Receive Date: 20100330
  Receipt Date: 20100318
  Transmission Date: 20100710
  Serious: Yes (Life-Threatening, Other)
  Sender: FDA-Public Use
  Company Number: IN-PFIZER INC-2010035565

PATIENT
  Age: 45 Year
  Sex: Male

DRUGS (1)
  1. MAGNEX [Suspect]
     Indication: SURGERY
     Dosage: 1 G, 2X/DAY
     Route: 042

REACTIONS (1)
  - THROMBOCYTOPENIA [None]
